FAERS Safety Report 4290425-X (Version None)
Quarter: 2004Q1

REPORT INFORMATION
  Report Type: 
  Country: None (occurrence: None)
  Receive Date: 20040209
  Receipt Date: 20030123
  Transmission Date: 20041129
  Serious: Yes (Hospitalization)
  Sender: FDA-Public Use
  Company Number: DSA_23931_2004

PATIENT
  Age: 89 Year
  Sex: Female

DRUGS (9)
  1. BI-TILDIEM [Suspect]
     Indication: HYPERTENSION
     Dates: start: 20031026, end: 20031028
  2. HEMIGOXINE NATIVELLE [Concomitant]
  3. LASILIX [Concomitant]
  4. TRIATEC [Concomitant]
  5. RULID [Concomitant]
  6. AUGMENTIN [Concomitant]
  7. AMLOR [Concomitant]
  8. PLAVIX [Concomitant]
  9. TAMOXIFEN CITRATE [Concomitant]

REACTIONS (9)
  - ACUTE GENERALISED EXANTHEMATOUS PUSTULOSIS [None]
  - BLOOD POTASSIUM INCREASED [None]
  - BRONCHITIS BACTERIAL [None]
  - CREPITATIONS [None]
  - GENERAL PHYSICAL HEALTH DETERIORATION [None]
  - HEART RATE IRREGULAR [None]
  - PROTEINURIA [None]
  - RENAL FAILURE ACUTE [None]
  - WHITE BLOOD CELL COUNT INCREASED [None]
